FAERS Safety Report 8345667-0 (Version None)
Quarter: 2012Q2

REPORT INFORMATION
  Report Type: 
  Country: None (occurrence: None)
  Receive Date: 20120508
  Receipt Date: 20120417
  Transmission Date: 20120825
  Serious: Yes (Hospitalization)
  Sender: FDA-Public Use
  Company Number: US-BAXTER-2012BAX000304

PATIENT
  Sex: Male

DRUGS (1)
  1. DIANEAL [Suspect]
     Indication: PERITONEAL DIALYSIS
     Route: 033

REACTIONS (5)
  - PYREXIA [None]
  - DEEP VEIN THROMBOSIS [None]
  - THROMBOSIS [None]
  - BETA HAEMOLYTIC STREPTOCOCCAL INFECTION [None]
  - SEPSIS [None]
